FAERS Safety Report 6847202-2 (Version None)
Quarter: 2010Q2

REPORT INFORMATION
  Report Type: 
  Country: None (occurrence: None)
  Receive Date: 20100629
  Receipt Date: 20100329
  Transmission Date: 20101027
  Serious: No
  Sender: FDA-Public Use
  Company Number: US-WYE-H14372510

PATIENT
  Age: 51 Year
  Sex: Female
  Weight: 95.34 kg

DRUGS (4)
  1. PRISTIQ [Suspect]
     Indication: HOT FLUSH
     Dosage: WEANED HERSELF OFF
     Dates: start: 20100101, end: 20100101
  2. PRISTIQ [Suspect]
     Indication: HOT FLUSH
     Dates: start: 20090401, end: 20100101
  3. MIRAPEX [Concomitant]
  4. ZOCOR [Concomitant]

REACTIONS (6)
  - DRUG INEFFECTIVE FOR UNAPPROVED INDICATION [None]
  - DRUG WITHDRAWAL SYNDROME [None]
  - INTENTIONAL DRUG MISUSE [None]
  - RASH [None]
  - SKIN INFECTION [None]
  - WEIGHT INCREASED [None]
